FAERS Safety Report 7031195-1 (Version None)
Quarter: 2010Q4

REPORT INFORMATION
  Report Type: 
  Country: None (occurrence: None)
  Receive Date: 20101001
  Receipt Date: 20100921
  Transmission Date: 20110411
  Serious: No
  Sender: FDA-Public Use
  Company Number: 019200

PATIENT
  Age: 38 Year
  Sex: Male
  Weight: 101 kg

DRUGS (3)
  1. KEPPRA [Suspect]
     Indication: CONVULSION
     Dosage: 500 MG BID ORAL, 1000 MG BID ORAL
     Route: 048
     Dates: start: 20090101, end: 20100919
  2. KEPPRA [Suspect]
     Indication: CONVULSION
     Dosage: 500 MG BID ORAL, 1000 MG BID ORAL
     Route: 048
     Dates: start: 20100920
  3. LACOSAMIDE [Suspect]
     Indication: CONVULSION
     Dosage: 150 MG BID ORAL
     Route: 048
     Dates: start: 20100101

REACTIONS (1)
  - CONVULSION [None]
